FAERS Safety Report 9562780 (Version 1)
Quarter: 2013Q3

REPORT INFORMATION
  Report Type: Spontaneous
  Country: CA (occurrence: CA)
  Receive Date: 20130927
  Receipt Date: 20130927
  Transmission Date: 20140515
  Serious: Yes (Hospitalization)
  Sender: FDA-Public Use
  Company Number: CA-BRISTOL-MYERS SQUIBB COMPANY-19389626

PATIENT
  Age: 48 Year
  Sex: Female
  Weight: 69.1 kg

DRUGS (8)
  1. YERVOY [Suspect]
     Indication: METASTATIC MALIGNANT MELANOMA
     Dosage: 200 MG
     Dates: start: 20130828
  2. SYNTHROID [Concomitant]
  3. KEPPRA [Concomitant]
     Indication: CONVULSION
  4. VENLAFAXINE HCL [Concomitant]
  5. VITAMIN D [Concomitant]
  6. MULTIVITAMINS + CALCIUM [Concomitant]
  7. TYLENOL [Concomitant]
  8. PROCHLORPERAZINE [Concomitant]

REACTIONS (2)
  - Psychotic disorder [Unknown]
  - Mania [Unknown]
